FAERS Safety Report 5018773-6 (Version None)
Quarter: 2006Q2

REPORT INFORMATION
  Report Type: 
  Country: None (occurrence: None)
  Receive Date: 20060606
  Receipt Date: 20060530
  Transmission Date: 20061013
  Serious: Yes (Hospitalization, Other)
  Sender: FDA-Public Use
  Company Number: FR-RB-3392-2006

PATIENT
  Age: 30 Year
  Sex: Female

DRUGS (1)
  1. BUPRENORPHINE HCL [Suspect]
     Indication: DRUG DEPENDENCE
     Dosage: DOSAGE UNKNOWN
     Route: 042
     Dates: start: 19960315

REACTIONS (15)
  - ABSCESS [None]
  - ASTHENIA [None]
  - CANDIDIASIS [None]
  - CHOLESTASIS [None]
  - CYTOLYTIC HEPATITIS [None]
  - FUNGAL SKIN INFECTION [None]
  - LYMPHADENOPATHY [None]
  - LYMPHOPENIA [None]
  - PYREXIA [None]
  - RASH [None]
  - RASH MACULAR [None]
  - RASH PUSTULAR [None]
  - SEPSIS [None]
  - SKIN NODULE [None]
  - WEIGHT DECREASED [None]
